FAERS Safety Report 5797663-5 (Version None)
Quarter: 2008Q3

REPORT INFORMATION
  Report Type: 
  Country: None (occurrence: None)
  Receive Date: 20080702
  Receipt Date: 20080624
  Transmission Date: 20090109
  Serious: Yes (Hospitalization, Other)
  Sender: FDA-Public Use
  Company Number: GB-JNJFOC-20080605847

PATIENT
  Sex: Female
  Weight: 72 kg

DRUGS (11)
  1. REMICADE [Suspect]
     Indication: RHEUMATOID ARTHRITIS
     Route: 042
  2. METHOTREXATE [Concomitant]
  3. PREDNISOLONE [Concomitant]
  4. ASPIRIN [Concomitant]
  5. ATENOLOL [Concomitant]
  6. CALCICHEW [Concomitant]
  7. ACETAMINOPHEN W/ CODEINE [Concomitant]
  8. FOLIC ACID [Concomitant]
  9. FOSAMAX [Concomitant]
  10. LACRILUBE [Concomitant]
  11. VIOXX [Concomitant]

REACTIONS (2)
  - FALL [None]
  - FEMORAL NECK FRACTURE [None]
